FAERS Safety Report 8478255-6 (Version None)
Quarter: 2012Q2

REPORT INFORMATION
  Report Type: 
  Country: None (occurrence: None)
  Receive Date: 20120629
  Receipt Date: 20120626
  Transmission Date: 20120825
  Serious: No
  Sender: FDA-Public Use
  Company Number: US-BAYER-2012-064031

PATIENT
  Age: 82 Year
  Sex: Male
  Weight: 70.295 kg

DRUGS (3)
  1. DIABETIC MEDICATION [Concomitant]
     Dosage: 2 UNK, UNK
  2. BLOOD PRESSURE MEDICATION (NOS) [Concomitant]
  3. ALEVE (CAPLET) [Suspect]
     Indication: BACK PAIN
     Dosage: 2 DF, UNK
     Route: 048
     Dates: start: 20120625, end: 20120626

REACTIONS (1)
  - BACK PAIN [None]
